FAERS Safety Report 19381052 (Version 2)
Quarter: 2022Q2

REPORT INFORMATION
  Report Type: Spontaneous
  Country: HR (occurrence: HR)
  Receive Date: 20210607
  Receipt Date: 20220408
  Transmission Date: 20220720
  Serious: Yes (Other)
  Sender: FDA-Public Use
  Company Number: None

PATIENT
  Age: 6 Year
  Sex: Female

DRUGS (1)
  1. MEASLES-MUMPS-RUBELLA VIRUS VACCINE, LIVE [Suspect]
     Active Substance: MEASLES-MUMPS-RUBELLA VIRUS VACCINE, LIVE
     Indication: Prophylaxis
     Route: 030
     Dates: start: 20150310, end: 20150310

REACTIONS (20)
  - Decreased eye contact [Unknown]
  - Decreased appetite [Unknown]
  - Food intolerance [Unknown]
  - Screaming [Unknown]
  - Dark circles under eyes [Unknown]
  - Candida infection [Unknown]
  - Parent-child problem [Unknown]
  - Pyrexia [Unknown]
  - Pharyngitis [Unknown]
  - Hyperaesthesia [Unknown]
  - Pallor [Unknown]
  - Stereotypy [Unknown]
  - Hyperacusis [Unknown]
  - Dermatitis [Unknown]
  - Vaccination site oedema [Unknown]
  - Social avoidant behaviour [Unknown]
  - Food refusal [Unknown]
  - Crying [Unknown]
  - Pruritus [Unknown]
  - Rash [Unknown]

NARRATIVE: CASE EVENT DATE: 20150301
